FAERS Safety Report 9145299 (Version 1)
Quarter: 2013Q1

REPORT INFORMATION
  Report Type: Spontaneous
  Country: US (occurrence: None)
  Receive Date: 20130220
  Receipt Date: 20130220
  Transmission Date: 20140127
  Serious: Yes (Death)
  Sender: FDA-Public Use
  Company Number: 2013-00366

PATIENT
  Age: 47 Year
  Sex: Female

DRUGS (9)
  1. LISINOPRIL (UNKNOWN) (LISINOPRIL) [Suspect]
     Indication: PRODUCT USED FOR UNKNOWN INDICATION
  2. CITALOPRAM (UNKNOWN) (CITALOPRAM) [Suspect]
  3. DILTIAZEM [Suspect]
  4. IRON [Suspect]
  5. ACETAMINOPHEN OXYCODONE [Suspect]
  6. GABAPENTIN (UNKNOWN) [Suspect]
  7. MODAFINIL [Suspect]
  8. TRAZODONE [Suspect]
  9. ETHANOL [Suspect]

REACTIONS (1)
  - Death [None]
